FAERS Safety Report 9575259 (Version 2)
Quarter: 2013Q4

REPORT INFORMATION
  Report Type: Report from Study
  Country: HU (occurrence: HU)
  Receive Date: 20131001
  Receipt Date: 20131016
  Transmission Date: 20140711
  Serious: Yes (Other)
  Sender: FDA-Public Use
  Company Number: HU-GLAXOSMITHKLINE-B0926346A

PATIENT
  Sex: Female

DRUGS (3)
  1. SERETIDE (50MCG/500MCG) [Suspect]
     Indication: ASTHMA
     Dosage: 1PUFF TWICE PER DAY
     Route: 055
     Dates: start: 2011
  2. RETAFYLLIN [Concomitant]
     Dosage: 200MG PER DAY
  3. ATORIS [Concomitant]
     Dosage: 40MG PER DAY

REACTIONS (2)
  - Hypoacusis [Recovering/Resolving]
  - Eye disorder [Not Recovered/Not Resolved]
